FAERS Safety Report 5903166-7 (Version None)
Quarter: 2008Q3

REPORT INFORMATION
  Report Type: 
  Country: None (occurrence: None)
  Receive Date: 20080929
  Receipt Date: 20080929
  Transmission Date: 20090109
  Serious: Yes (Other)
  Sender: FDA-Public Use
  Company Number: None

PATIENT
  Age: 53 Year
  Sex: Female
  Weight: 59.8748 kg

DRUGS (2)
  1. ZOLPIDEM [Suspect]
     Indication: HOT FLUSH
     Dosage: 10MG HS PO
     Route: 048
     Dates: start: 20080813, end: 20080813
  2. ZOLPIDEM [Suspect]
     Indication: INSOMNIA
     Dosage: 10MG HS PO
     Route: 048
     Dates: start: 20080813, end: 20080813

REACTIONS (1)
  - AMNESIA [None]
